FAERS Safety Report 9250939 (Version 1)
Quarter: 2013Q1

REPORT INFORMATION
  Report Type: Spontaneous
  Country: US (occurrence: None)
  Receive Date: 20130305
  Receipt Date: 20130305
  Transmission Date: 20140127
  Serious: Yes (Other)
  Sender: FDA-Public Use
  Company Number: 163-21880-12082514

PATIENT
  Age: 66 Year
  Sex: Male

DRUGS (16)
  1. REVLIMID (LENALIDOMIDE) [Suspect]
     Indication: PLASMA CELL MYELOMA
     Route: 048
     Dates: start: 201005
  2. VELCAE [Concomitant]
  3. ACYCLOVIR (ACYCLOVIR) [Concomitant]
  4. DEXAMETHASONE [Concomitant]
  5. TRAZODONE (TRAZODONE) [Concomitant]
  6. ATENOLOL (ATENOLOL) [Concomitant]
  7. SIMVASTATIN [Concomitant]
  8. FAMOTIDINE [Concomitant]
  9. OXYCODONE [Concomitant]
  10. PLAVIX (CLOPIDOGREL SULFATE) [Concomitant]
  11. POTASSIUM (POTASSIUM) [Concomitant]
  12. GLUCOS/CHOND (CHONDROITIN SODIUM SULFATE W/GLUCOSAMINE HCL) [Concomitant]
  13. NITROGLYCERIN (GLYCERYL TRINITIRATE) [Concomitant]
  14. MULTIVITAMINS (MULTIIVITAMINS) [Concomitant]
  15. CARISOPRODOL (CARISPRODOL) [Concomitant]
  16. VITAMIN D (ERGOCALCIFEROL) [Concomitant]

REACTIONS (5)
  - Hallucination [None]
  - Dysuria [None]
  - Bowel movement irregularity [None]
  - Infection [None]
  - Pyrexia [None]
